FAERS Safety Report 7673601-5 (Version None)
Quarter: 2011Q3

REPORT INFORMATION
  Report Type: 
  Country: None (occurrence: None)
  Receive Date: 20110804
  Receipt Date: 20110720
  Transmission Date: 20111222
  Serious: Yes (Hospitalization, Other)
  Sender: FDA-Public Use
  Company Number: 2011MA009194

PATIENT
  Age: 29 Year
  Sex: Female

DRUGS (7)
  1. TENOFOVIR DISOPROXIL FUMARATE [Concomitant]
  2. DAPSONE [Concomitant]
  3. ACYCLOVIR [Suspect]
     Indication: NECROTISING RETINITIS
     Dosage: 800 MG, Q5H
  4. FLUCONAZOLE [Concomitant]
  5. DEXAMETHASONE [Suspect]
     Indication: NECROTISING RETINITIS
     Dosage: 0.1 PT, Q6H, OPH
     Route: 047
  6. LAMIVUDINE [Concomitant]
  7. EFAVIRENZ [Concomitant]

REACTIONS (10)
  - VISION BLURRED [None]
  - ANGIOEDEMA [None]
  - CATARACT [None]
  - RASH MACULAR [None]
  - CD4 LYMPHOCYTES DECREASED [None]
  - CHEST DISCOMFORT [None]
  - LOWER RESPIRATORY TRACT INFECTION [None]
  - SKIN DISORDER [None]
  - RASH ERYTHEMATOUS [None]
  - VISUAL ACUITY REDUCED [None]
